FAERS Safety Report 24844359 (Version 1)
Quarter: 2025Q1

REPORT INFORMATION
  Report Type: Spontaneous
  Country: US (occurrence: None)
  Receive Date: 20250114
  Receipt Date: 20250114
  Transmission Date: 20250408
  Serious: Yes (Other)
  Sender: FDA-CTU
  Company Number: None

PATIENT
  Age: 45 Year
  Sex: Female

DRUGS (1)
  1. ENBREL [Suspect]
     Active Substance: ETANERCEPT
     Indication: Psoriatic arthropathy
     Dosage: FREQUENCY : WEEKLY;?

REACTIONS (6)
  - Diarrhoea [None]
  - Haematochezia [None]
  - Impaired work ability [None]
  - Therapy interrupted [None]
  - Psoriatic arthropathy [None]
  - Psoriasis [None]
